FAERS Safety Report 8879774 (Version 1)
Quarter: 2012Q4

REPORT INFORMATION
  Report Type: Report from Study
  Country: JP (occurrence: JP)
  Receive Date: 20121101
  Receipt Date: 20121101
  Transmission Date: 20130627
  Serious: Yes (Hospitalization)
  Sender: FDA-Public Use
  Company Number: JP-VERTEX PHARMACEUTICAL INC.-AE-2012-005684

PATIENT
  Age: 47 Year
  Sex: Male

DRUGS (16)
  1. VX-950 [Suspect]
     Indication: HEPATITIS C
     Dosage: 2250 mg, qd
     Route: 048
     Dates: start: 20120405, end: 20120419
  2. VX-950 [Suspect]
     Dosage: 2250 mg, qd
     Route: 048
     Dates: start: 20120426
  3. PEGINTRON                          /01543001/ [Suspect]
     Indication: HEPATITIS C
     Dosage: 1.4 ?g/kg, qw
     Route: 058
     Dates: start: 20120405, end: 20120419
  4. PEGINTRON                          /01543001/ [Suspect]
     Dosage: 1.4 ?g/kg, qw
     Route: 058
     Dates: start: 20120426
  5. REBETOL [Suspect]
     Indication: HEPATITIS C
     Dosage: 800 mg, qd
     Route: 048
     Dates: start: 20120405, end: 20120419
  6. REBETOL [Suspect]
     Dosage: 800 mg, qd
     Route: 048
     Dates: start: 20120426
  7. REBETOL [Suspect]
     Dosage: 600 mg, qd
     Route: 048
     Dates: start: 20120524, end: 20120822
  8. REBETOL [Suspect]
     Dosage: 800 mg, qd
     Route: 048
     Dates: start: 20120823
  9. TAKEPRON [Concomitant]
     Dosage: 15 mg, qd
     Route: 048
     Dates: start: 20120405, end: 20120419
  10. TAKEPRON [Concomitant]
     Dosage: 15 mg, qd
     Route: 048
  11. ALLEGRA [Concomitant]
     Dosage: 60 mg, qd
     Route: 048
     Dates: start: 20120405, end: 20120419
  12. ALLEGRA [Concomitant]
     Dosage: 60 mg, qd
     Route: 048
     Dates: end: 20120724
  13. VONAFEC [Concomitant]
     Dosage: 50 mg, prn
     Route: 054
     Dates: start: 20120405, end: 20120419
  14. ASPARA K [Concomitant]
     Dosage: 1800 mg, qd
     Route: 048
     Dates: start: 20120531
  15. ZYLORIC [Concomitant]
     Dosage: 100 mg, qd
     Route: 048
  16. CRAVIT [Concomitant]
     Dosage: 500 mg, qd
     Route: 048
     Dates: start: 20120920

REACTIONS (3)
  - Bradycardia [Recovered/Resolved]
  - Muscular weakness [Recovered/Resolved]
  - Thirst [Recovered/Resolved]
